FAERS Safety Report 10767244 (Version 2)
Quarter: 2016Q1

REPORT INFORMATION
  Report Type: Spontaneous
  Country: US (occurrence: US)
  Receive Date: 20150205
  Receipt Date: 20160202
  Transmission Date: 20160525
  Serious: No
  Sender: FDA-Public Use
  Company Number: US-GALDERMA-US14004167

PATIENT
  Age: 30 Year
  Sex: Female

DRUGS (6)
  1. EPIDUO [Suspect]
     Active Substance: ADAPALENE\BENZOYL PEROXIDE
     Indication: RASH
     Dosage: 0.1%/2.5%
     Route: 061
     Dates: start: 20141016, end: 20141107
  2. MULTI V FOR WOMEN [Concomitant]
     Dates: start: 2013
  3. EPIDUO [Suspect]
     Active Substance: ADAPALENE\BENZOYL PEROXIDE
     Indication: ACNE
  4. UNSPECIFIED NEUTROGENA FACE WASH [Concomitant]
     Indication: THERAPEUTIC SKIN CARE TOPICAL
     Route: 061
  5. BARRIER REPAIR [Concomitant]
     Indication: DRY SKIN
     Dates: start: 20141024
  6. UNSPECIFIED NEUTROGENA MOISTURIZER [Concomitant]
     Indication: DRY SKIN PROPHYLAXIS
     Route: 061

REACTIONS (11)
  - Insomnia [Recovered/Resolved]
  - Dry skin [Not Recovered/Not Resolved]
  - Skin discomfort [Recovered/Resolved]
  - Inflammation [Recovered/Resolved]
  - Skin irritation [Recovered/Resolved]
  - Erythema [Recovered/Resolved]
  - Pruritus [Not Recovered/Not Resolved]
  - Rash papular [Not Recovered/Not Resolved]
  - Drug ineffective [Unknown]
  - Skin discolouration [Not Recovered/Not Resolved]
  - Acne [Unknown]

NARRATIVE: CASE EVENT DATE: 20141021
